FAERS Safety Report 24201176 (Version 1)
Quarter: 2024Q3

REPORT INFORMATION
  Report Type: Spontaneous
  Country: US (occurrence: US)
  Receive Date: 20240812
  Receipt Date: 20240812
  Transmission Date: 20241017
  Serious: No
  Sender: PFIZER
  Company Number: US-PFIZER INC-202400232525

PATIENT
  Age: 49 Year
  Sex: Male
  Weight: 80.74 kg

DRUGS (2)
  1. NURTEC ODT [Suspect]
     Active Substance: RIMEGEPANT SULFATE
     Indication: Migraine
     Dosage: UNK
  2. HYDROCORTISONE [Concomitant]
     Active Substance: HYDROCORTISONE\HYDROCORTISONE ACETATE
     Indication: Seborrhoeic dermatitis
     Dosage: UNK (NOT TAKEN CONSISTENTLY, ONLY TAKEN DURING FLARE-UPS)

REACTIONS (3)
  - Aphasia [Unknown]
  - Feeling abnormal [Unknown]
  - Off label use [Unknown]
